FAERS Safety Report 5805846-0 (Version None)
Quarter: 2008Q3

REPORT INFORMATION
  Report Type: 
  Country: None (occurrence: None)
  Receive Date: 20080709
  Receipt Date: 20080709
  Transmission Date: 20090109
  Serious: Yes (Hospitalization)
  Sender: FDA-Public Use
  Company Number: None

PATIENT
  Age: 49 Year
  Sex: Male
  Weight: 96 kg

DRUGS (2)
  1. CLONIDINE [Suspect]
     Indication: DRUG WITHDRAWAL SYNDROME
     Dosage: 0.1 MG BID PO
     Route: 048
     Dates: start: 20080417, end: 20080423
  2. CLONIDINE [Suspect]
     Indication: HYPERTENSION
     Dosage: 0.1 MG BID PO
     Route: 048
     Dates: start: 20080417, end: 20080423

REACTIONS (2)
  - BRADYCARDIA [None]
  - INCORRECT DOSE ADMINISTERED [None]
